FAERS Safety Report 9155820 (Version 1)
Quarter: 2013Q1

REPORT INFORMATION
  Report Type: Spontaneous
  Country: FR (occurrence: FR)
  Receive Date: 20130311
  Receipt Date: 20130311
  Transmission Date: 20140127
  Serious: Yes (Hospitalization)
  Sender: FDA-Public Use
  Company Number: FR-UCBSA-080202

PATIENT
  Age: 72 Year
  Sex: Female

DRUGS (3)
  1. KEPPRA [Suspect]
     Route: 048
     Dates: start: 20130126, end: 20130207
  2. TEGRETOL [Suspect]
     Dosage: SUSTAINED RELEASE, DAILY DOSE: 200 MG
     Route: 048
     Dates: start: 20130126, end: 20130207
  3. URBANYL [Concomitant]

REACTIONS (3)
  - Thrombocytopenia [Recovered/Resolved]
  - Generalised erythema [Recovered/Resolved]
  - Asthenia [Unknown]
